FAERS Safety Report 7599602 (Version 3)
Quarter: 2013Q3

REPORT INFORMATION
  Report Type: Spontaneous
  Country: IT (occurrence: IT)
  Receive Date: 20100921
  Receipt Date: 20130903
  Transmission Date: 20140515
  Serious: Yes (Other)
  Sender: FDA-Public Use
  Company Number: IT-TEVA-248791ISR

PATIENT
  Sex: Male

DRUGS (12)
  1. AZILECT [Suspect]
     Indication: PARKINSON^S DISEASE
     Dosage: 1 MILLIGRAM DAILY;
     Route: 048
     Dates: start: 201008
  2. PROSTIDE [Concomitant]
     Dosage: 1 DOSAGE FORMS DAILY;
     Route: 048
  3. STALEVO 100 MG+25MG+200MG [Concomitant]
     Indication: PARKINSON^S DISEASE
     Dosage: 2 DOSAGE FORMS DAILY; CARBIDOPA 100MG W/LEVODOPA 25MG W/ENTACAPONE 200MG
     Route: 048
  4. SEROQUEL 100 MG [Concomitant]
     Dosage: 175 MILLIGRAM DAILY;
  5. VENITRIN 5MG/24H [Concomitant]
     Dosage: 1 DOSAGE FORMS DAILY;
     Route: 062
  6. ACETYLSALICYLIC ACID [Concomitant]
     Dosage: 100 MILLIGRAM DAILY;
  7. GUTRON [Concomitant]
  8. FOLIDAR [Concomitant]
  9. LASIX 25 MG [Concomitant]
  10. SINESTIC [Concomitant]
  11. CARDIRENE 75MG [Concomitant]
  12. PARIET 20MG [Concomitant]
     Dosage: GASTRORESISTANT TABLET

REACTIONS (1)
  - Pancytopenia [Recovering/Resolving]
